FAERS Safety Report 4757745-3 (Version None)
Quarter: 2005Q3

REPORT INFORMATION
  Report Type: 
  Country: None (occurrence: None)
  Receive Date: 20050829
  Receipt Date: 20050818
  Transmission Date: 20060218
  Serious: Yes (Hospitalization, Other)
  Sender: FDA-Public Use
  Company Number: HQWYE023419AUG05

PATIENT
  Sex: Female

DRUGS (4)
  1. EFFEXOR XR [Suspect]
     Indication: GENERALISED ANXIETY DISORDER
     Dosage: ORAL
     Route: 048
  2. EFFEXOR XR [Suspect]
     Indication: MAJOR DEPRESSION
     Dosage: ORAL
     Route: 048
  3. EFFEXOR XR [Suspect]
     Indication: SOCIAL PHOBIA
     Dosage: ORAL
     Route: 048
  4. NEURONTIN [Concomitant]

REACTIONS (1)
  - HEPATITIS C [None]
